FAERS Safety Report 10239376 (Version 1)
Quarter: 2014Q2

REPORT INFORMATION
  Report Type: Report from Study
  Country: US (occurrence: US)
  Receive Date: 20140616
  Receipt Date: 20140616
  Transmission Date: 20141212
  Serious: No
  Sender: FDA-Public Use
  Company Number: US-ABBVIE-14P-163-1243339-00

PATIENT
  Age: 51 Year
  Sex: Female
  Weight: 63.56 kg

DRUGS (4)
  1. LUPANETA PACK [Suspect]
     Indication: UTERINE LEIOMYOMA
     Route: 030
     Dates: start: 201403
  2. LUPANETA PACK [Suspect]
     Indication: UTERINE LEIOMYOMA
  3. LUPANETA PACK [Suspect]
     Indication: UTERINE LEIOMYOMA
     Route: 048
     Dates: start: 201403, end: 201405
  4. LUPANETA PACK [Suspect]
     Indication: UTERINE LEIOMYOMA

REACTIONS (4)
  - Thinking abnormal [Recovered/Resolved]
  - Headache [Recovered/Resolved]
  - Insomnia [Recovered/Resolved]
  - Anxiety [Recovered/Resolved]
